FAERS Safety Report 25892978 (Version 2)
Quarter: 2025Q4

REPORT INFORMATION
  Report Type: Spontaneous
  Country: US (occurrence: US)
  Receive Date: 20251008
  Receipt Date: 20251120
  Transmission Date: 20260118
  Serious: No
  Sender: SANDOZ
  Company Number: US-SANDOZ-SDZ2025US073400

PATIENT

DRUGS (1)
  1. FOCALIN XR [Suspect]
     Active Substance: DEXMETHYLPHENIDATE HYDROCHLORIDE
     Indication: Product used for unknown indication
     Dosage: 20 MG SHORT  ACTING 2.5 MG
     Route: 065

REACTIONS (2)
  - Disturbance in attention [Unknown]
  - Product substitution issue [Unknown]
